FAERS Safety Report 5492919-8 (Version None)
Quarter: 2007Q4

REPORT INFORMATION
  Report Type: 
  Country: None (occurrence: None)
  Receive Date: 20071018
  Receipt Date: 20071008
  Transmission Date: 20080405
  Serious: Yes (Hospitalization, Other)
  Sender: FDA-Public Use
  Company Number: GB-DEXPHARM-2007817

PATIENT
  Sex: Female

DRUGS (2)
  1. DICLOFENAC 50 MG (BATCH: 06743-A) [Suspect]
     Indication: BACK PAIN
     Dosage: ^1 TABLET^ { 50 MG MILLIGRAM(S) } ORAL
     Route: 048
  2. ACETAMINOPHEN [Concomitant]

REACTIONS (6)
  - ANAPHYLACTIC REACTION [None]
  - DRUG ADMINISTRATION ERROR [None]
  - EXPIRED DRUG ADMINISTERED [None]
  - ILL-DEFINED DISORDER [None]
  - LOSS OF CONSCIOUSNESS [None]
  - PRURITUS [None]
